FAERS Safety Report 8121046-6 (Version None)
Quarter: 2012Q1

REPORT INFORMATION
  Report Type: 
  Country: None (occurrence: None)
  Receive Date: 20120208
  Receipt Date: 20120201
  Transmission Date: 20120608
  Serious: Yes (Other)
  Sender: FDA-Public Use
  Company Number: CA-BAYER-2011-120448

PATIENT
  Age: 77 Year
  Sex: Male

DRUGS (11)
  1. AVELOX [Suspect]
     Dosage: 400 MG, QD
     Route: 048
     Dates: start: 20111205
  2. ADVAIR DISKUS 100/50 [Concomitant]
  3. EZETIMIBE [Concomitant]
  4. ZOPICLONE [Concomitant]
  5. DILTIAZEM HCL [Concomitant]
  6. LIBRAX [Suspect]
     Dosage: UNK
     Dates: start: 20111209
  7. PANTOPRAZOLE [Concomitant]
  8. VENTOLIN [Concomitant]
  9. CRESTOR [Concomitant]
  10. ASPIRIN [Concomitant]
  11. XANAX [Concomitant]

REACTIONS (1)
  - HYPOACUSIS [None]
